FAERS Safety Report 10171977 (Version 4)
Quarter: 2015Q2

REPORT INFORMATION
  Report Type: Spontaneous
  Country: US (occurrence: US)
  Receive Date: 20140515
  Receipt Date: 20150511
  Transmission Date: 20150821
  Serious: No
  Sender: FDA-Public Use
  Company Number: US-PFIZER INC-2014131161

PATIENT
  Sex: Female

DRUGS (6)
  1. XANAX [Concomitant]
     Active Substance: ALPRAZOLAM
     Dosage: 0.5 MG, 2X/DAY (? TAB 2X A DAY XANAX 1 MG)
  2. ATIVAN [Concomitant]
     Active Substance: LORAZEPAM
     Dosage: UNK 1 MG, 1X/DAY
  3. CRESTOR [Concomitant]
     Active Substance: ROSUVASTATIN CALCIUM
     Dosage: 10 MG, 1X/DAY
  4. BUMETANIDE. [Concomitant]
     Active Substance: BUMETANIDE
     Dosage: (1/2), 1X/DAY
  5. LYRICA [Suspect]
     Active Substance: PREGABALIN
     Indication: NEUROPATHY PERIPHERAL
     Dosage: 150 MG, 3X/DAY
  6. DILAUDID [Concomitant]
     Active Substance: HYDROMORPHONE HYDROCHLORIDE
     Dosage: 4 MG, 3X/DAY

REACTIONS (6)
  - Memory impairment [Unknown]
  - Hyperhidrosis [Unknown]
  - Fatigue [Unknown]
  - Drug withdrawal syndrome [Unknown]
  - Feeling abnormal [Unknown]
  - Malaise [Unknown]
